FAERS Safety Report 4980285-3 (Version None)
Quarter: 2006Q2

REPORT INFORMATION
  Report Type: 
  Country: None (occurrence: None)
  Receive Date: 20060420
  Receipt Date: 20060420
  Transmission Date: 20061013
  Serious: Yes (Hospitalization)
  Sender: FDA-Public Use
  Company Number: None

PATIENT
  Age: 83 Year
  Sex: Male
  Weight: 83.5 kg

DRUGS (9)
  1. OXYCODONE HCL [Suspect]
  2. RANITIDINE HCL [Concomitant]
  3. METOPROLOL TARTRATE [Concomitant]
  4. SPIRONOLACTONE [Concomitant]
  5. EZETIMIDE 10MG/SIMVASTATIN 80 MG [Concomitant]
  6. LOSARTAN POTASSIUM [Concomitant]
  7. METHYLPREDNISOLONE [Concomitant]
  8. NITROGLYCERIN [Concomitant]
  9. DOCUSATE NA [Concomitant]

REACTIONS (2)
  - PRURITUS [None]
  - RASH [None]
